FAERS Safety Report 10233875 (Version 1)
Quarter: 2014Q2

REPORT INFORMATION
  Report Type: Spontaneous
  Country: DE (occurrence: None)
  Receive Date: 20140610
  Receipt Date: 20140610
  Transmission Date: 20141212
  Serious: Yes (Hospitalization)
  Sender: FDA-Public Use
  Company Number: AUR-APL-2014-06183

PATIENT
  Age: 29 Year
  Sex: Female

DRUGS (3)
  1. OLANZAPINE [Suspect]
     Indication: INSOMNIA
  2. CLOZAPINE [Suspect]
     Indication: SCHIZOPHRENIA
     Dosage: (50 MG- 0-200 MG-0)
  3. FLUVOXAMINE [Suspect]
     Indication: ENZYME INHIBITION

REACTIONS (4)
  - Obsessive-compulsive disorder [None]
  - Constipation [None]
  - Dry mouth [None]
  - Vision blurred [None]
